FAERS Safety Report 22304733 (Version 1)
Quarter: 2023Q2

REPORT INFORMATION
  Report Type: Spontaneous
  Country: US (occurrence: US)
  Receive Date: 20230510
  Receipt Date: 20230510
  Transmission Date: 20230721
  Serious: Yes (Hospitalization, Other)
  Sender: FDA-Public Use
  Company Number: US-ELI_LILLY_AND_COMPANY-US202305001252

PATIENT
  Age: 50 Year
  Sex: Male

DRUGS (1)
  1. MOUNJARO [Suspect]
     Active Substance: TIRZEPATIDE
     Indication: Type 2 diabetes mellitus
     Dosage: 15 MG, UNKNOWN
     Route: 065

REACTIONS (9)
  - Renal failure [Recovered/Resolved]
  - Hepatic cirrhosis [Recovered/Resolved]
  - Blood creatinine increased [Recovered/Resolved]
  - Dehydration [Recovered/Resolved]
  - Diarrhoea [Recovered/Resolved]
  - Hypothyroidism [Recovered/Resolved]
  - Hyperlipidaemia [Recovered/Resolved]
  - Sleep apnoea syndrome [Recovered/Resolved]
  - Anxiety [Recovered/Resolved]
